FAERS Safety Report 7801301-7 (Version None)
Quarter: 2011Q4

REPORT INFORMATION
  Report Type: 
  Country: None (occurrence: None)
  Receive Date: 20111005
  Receipt Date: 20110929
  Transmission Date: 20120403
  Serious: Yes (Other)
  Sender: FDA-Public Use
  Company Number: 11-001050

PATIENT
  Age: 77 Year
  Sex: Female
  Weight: 81.6 kg

DRUGS (6)
  1. ZEGERID [Concomitant]
  2. ESTRACE [Suspect]
     Indication: ATROPHIC VULVOVAGINITIS
     Dosage: 0.5 G, QD, VAGINAL, 0.5 G, BIW, VAGINAL, 1-3 G,QW, VAGINAL
     Route: 067
     Dates: start: 20070101, end: 20110901
  3. ESTRACE [Suspect]
     Indication: ATROPHIC VULVOVAGINITIS
     Dosage: 0.5 G, QD, VAGINAL, 0.5 G, BIW, VAGINAL, 1-3 G,QW, VAGINAL
     Route: 067
     Dates: end: 20070101
  4. ESTRACE [Suspect]
     Indication: ATROPHIC VULVOVAGINITIS
     Dosage: 0.5 G, QD, VAGINAL, 0.5 G, BIW, VAGINAL, 1-3 G,QW, VAGINAL
     Route: 067
     Dates: start: 20060101
  5. LOSARTAN POTASSIUM [Concomitant]
  6. OMEPRAZOLE [Concomitant]

REACTIONS (1)
  - SPEECH DISORDER [None]
